FAERS Safety Report 7886144-0 (Version None)
Quarter: 2011Q4

REPORT INFORMATION
  Report Type: 
  Country: None (occurrence: None)
  Receive Date: 20111102
  Receipt Date: 20110706
  Transmission Date: 20120403
  Serious: No
  Sender: FDA-Public Use
  Company Number: US-AMGEN-USASP2011034350

PATIENT
  Age: 57 Year
  Sex: Female

DRUGS (1)
  1. ENBREL [Suspect]
     Indication: PSORIASIS
     Dosage: 50 MG, QWK
     Dates: start: 20101101

REACTIONS (11)
  - HEADACHE [None]
  - PAIN [None]
  - PSORIASIS [None]
  - INJECTION SITE REACTION [None]
  - INJECTION SITE ERYTHEMA [None]
  - INJECTION SITE INDURATION [None]
  - INJECTION SITE WARMTH [None]
  - OEDEMA PERIPHERAL [None]
  - JOINT SWELLING [None]
  - PRURITUS [None]
  - HYPERSENSITIVITY [None]
